FAERS Safety Report 8508383-8 (Version None)
Quarter: 2012Q3

REPORT INFORMATION
  Report Type: 
  Country: None (occurrence: None)
  Receive Date: 20120713
  Receipt Date: 20120710
  Transmission Date: 20120928
  Serious: Yes (Hospitalization)
  Sender: FDA-Public Use
  Company Number: PHFR2012GB003967

PATIENT
  Sex: Female

DRUGS (2)
  1. CLOZARIL [Suspect]
     Indication: SCHIZOPHRENIA
     Route: 048
     Dates: start: 20070219
  2. CLOZARIL [Suspect]
     Dosage: 275 MG, QD
     Route: 048

REACTIONS (2)
  - NEGATIVE THOUGHTS [None]
  - CELLULITIS [None]
